FAERS Safety Report 8772297 (Version 3)
Quarter: 2012Q4

REPORT INFORMATION
  Report Type: 
  Country: DE (occurrence: DE)
  Receive Date: 20120905
  Receipt Date: 20120912
  Transmission Date: 20130627
  Serious: Yes (Death)
  Sender: FDA-Public Use
  Company Number: PHHY2012DE076689

PATIENT
  Sex: Male
  Weight: 80 kg

DRUGS (4)
  1. EXELON [Suspect]
     Indication: DEMENTIA ALZHEIMER^S TYPE
     Dosage: 1.5 mg, daily
     Route: 048
     Dates: start: 20120125, end: 20120208
  2. EXELON [Suspect]
     Dosage: 3 mg, daily
     Route: 048
     Dates: start: 20120209, end: 20120229
  3. EXELON PATCH [Suspect]
     Indication: DEMENTIA ALZHEIMER^S TYPE
     Dosage: 4.6 mg/ 24 hours
     Route: 062
     Dates: start: 20120301, end: 20120402
  4. EXELON PATCH [Suspect]
     Dosage: 9.5 mg/ 24 hours
     Route: 062
     Dates: start: 20120403

REACTIONS (1)
  - Death [Fatal]
